FAERS Safety Report 4940071-7 (Version None)
Quarter: 2006Q1

REPORT INFORMATION
  Report Type: 
  Country: None (occurrence: None)
  Receive Date: 20060310
  Receipt Date: 20060123
  Transmission Date: 20060701
  Serious: Yes (Hospitalization)
  Sender: FDA-Public Use
  Company Number: GB-ROCHE-433511

PATIENT
  Age: 60 Year
  Sex: Female
  Weight: 75 kg

DRUGS (7)
  1. XENICAL [Suspect]
     Route: 048
     Dates: start: 20050902, end: 20051212
  2. METFORMIN [Concomitant]
     Route: 048
     Dates: start: 20010828
  3. RAMIPRIL [Concomitant]
     Indication: HYPERTENSION
     Route: 048
     Dates: start: 20010219
  4. ATENOLOL [Concomitant]
     Indication: HYPERTENSION
     Route: 048
     Dates: start: 20041015
  5. ATORVASTATIN CALCIUM [Concomitant]
     Route: 048
     Dates: start: 20020911
  6. BENDROFLUMETHIAZIDE [Concomitant]
     Indication: HYPERTENSION
     Route: 048
     Dates: start: 20020514
  7. ROSIGLITAZONE [Concomitant]
     Route: 048
     Dates: start: 20050613

REACTIONS (7)
  - ANAEMIA [None]
  - FAECES DISCOLOURED [None]
  - FATIGUE [None]
  - GASTRITIS HAEMORRHAGIC [None]
  - MUSCLE SPASMS [None]
  - NOCTURIA [None]
  - PALLOR [None]
